FAERS Safety Report 24197617 (Version 1)
Quarter: 2024Q3

REPORT INFORMATION
  Report Type: Spontaneous
  Country: CN (occurrence: CN)
  Receive Date: 20240811
  Receipt Date: 20240811
  Transmission Date: 20241017
  Serious: Yes (Other)
  Sender: BAXTER
  Company Number: None

PATIENT
  Age: 13 Year
  Sex: Male
  Weight: 72.8 kg

DRUGS (5)
  1. CYCLOPHOSPHAMIDE [Suspect]
     Active Substance: CYCLOPHOSPHAMIDE
     Indication: Acute lymphocytic leukaemia
     Dosage: 1.783 G ONE TIME IN ONE DAY DILUTED WITH 0.9% SODIUM CHLORIDE (NS) 250 ML
     Route: 041
     Dates: start: 20240209, end: 20240209
  2. SODIUM CHLORIDE [Suspect]
     Active Substance: SODIUM CHLORIDE
     Indication: Medication dilution
     Dosage: 250 ML (0.9%), ONE TIME IN ONE DAY USED TO DILUTE CYCLOPHOSPHAMIDE 1.783 G
     Route: 041
     Dates: start: 20240209, end: 20240209
  3. SODIUM CHLORIDE [Suspect]
     Active Substance: SODIUM CHLORIDE
     Dosage: 250 ML (0.9%), TWO TIME IN ONE DAY (Q12H) USED TO DILUTE CYTARABINE 1.783 G, (D1-4)
     Route: 041
     Dates: start: 20240209, end: 20240212
  4. MERCAPTOPURINE [Suspect]
     Active Substance: MERCAPTOPURINE
     Indication: Acute lymphocytic leukaemia
     Dosage: 89 MG, ONE TIME IN ONE DAY (QN), (D1-D4)
     Route: 048
     Dates: start: 20240209, end: 20240212
  5. CYTARABINE [Suspect]
     Active Substance: CYTARABINE
     Indication: Acute lymphocytic leukaemia
     Dosage: 1.783 G, TWO TIMES IN ONE DAY (Q12H) DILUTED WITH 0.9% SODIUM CHLORIDE (NS) 250 ML, (D1-4)
     Route: 041
     Dates: start: 20240209, end: 20240212

REACTIONS (2)
  - Myelosuppression [Recovering/Resolving]
  - Platelet count decreased [Recovering/Resolving]

NARRATIVE: CASE EVENT DATE: 20240218
